FAERS Safety Report 7218876-1 (Version None)
Quarter: 2011Q1

REPORT INFORMATION
  Report Type: 
  Country: None (occurrence: None)
  Receive Date: 20110110
  Receipt Date: 20101230
  Transmission Date: 20110831
  Serious: No
  Sender: FDA-Public Use
  Company Number: US-PFIZER INC-2010182428

PATIENT
  Sex: Female

DRUGS (1)
  1. XALATAN [Suspect]

REACTIONS (1)
  - EYELASH THICKENING [None]
